FAERS Safety Report 5456294-7 (Version None)
Quarter: 2007Q3

REPORT INFORMATION
  Report Type: 
  Country: None (occurrence: None)
  Receive Date: 20070918
  Receipt Date: 20070702
  Transmission Date: 20080115
  Serious: Yes (Other)
  Sender: FDA-Public Use
  Company Number: US-ASTRAZENECA-2006UW23300

PATIENT
  Age: 596 Month
  Sex: Male
  Weight: 104.5 kg

DRUGS (5)
  1. SEROQUEL [Suspect]
     Indication: POST-TRAUMATIC STRESS DISORDER
     Route: 048
     Dates: start: 20000301
  2. ABILIFY [Concomitant]
  3. CLOZARIL [Concomitant]
  4. HALDOL [Concomitant]
  5. TRILAFON [Concomitant]

REACTIONS (2)
  - DIABETES MELLITUS [None]
  - PANCREATITIS [None]
